FAERS Safety Report 5031702-4 (Version None)
Quarter: 2006Q2

REPORT INFORMATION
  Report Type: 
  Country: None (occurrence: None)
  Receive Date: 20060616
  Receipt Date: 20060530
  Transmission Date: 20061013
  Serious: Yes (Hospitalization)
  Sender: FDA-Public Use
  Company Number: US200604002028

PATIENT
  Age: 69 Year
  Sex: Female
  Weight: 34.9 kg

DRUGS (8)
  1. FORTEO [Suspect]
     Indication: OSTEOPOROSIS
     Dosage: 20 UG, DAILY (1/D)
     Dates: end: 20060322
  2. FORTEO [Suspect]
     Indication: OSTEOPOROSIS
     Dosage: 20 UG, DAILY (1/D)
     Dates: start: 20040901
  3. . [Concomitant]
  4. FORTEO [Suspect]
  5. FORTEO [Concomitant]
  6. LOMOTIL [Concomitant]
  7. DILAUDID /CAN/ (HYDROMORPHONE HYDROCHLORIDE) [Concomitant]
  8. OXYCODONE (OXYCODONE) [Concomitant]

REACTIONS (19)
  - ABDOMINAL PAIN UPPER [None]
  - BLOOD PRESSURE FLUCTUATION [None]
  - CONTUSION [None]
  - DEHYDRATION [None]
  - DENTAL CARIES [None]
  - DIARRHOEA [None]
  - DIZZINESS [None]
  - DRUG INEFFECTIVE [None]
  - GASTROINTESTINAL DISORDER [None]
  - GASTROOESOPHAGEAL REFLUX DISEASE [None]
  - HIATUS HERNIA [None]
  - INJECTION SITE ERYTHEMA [None]
  - INJECTION SITE PAIN [None]
  - MUSCLE SPASMS [None]
  - PAIN [None]
  - PAIN IN EXTREMITY [None]
  - PHARMACEUTICAL PRODUCT COMPLAINT [None]
  - TINNITUS [None]
  - VISION BLURRED [None]
